FAERS Safety Report 6871928-8 (Version None)
Quarter: 2010Q3

REPORT INFORMATION
  Report Type: 
  Country: None (occurrence: None)
  Receive Date: 20100723
  Receipt Date: 20100712
  Transmission Date: 20110219
  Serious: Yes (Other)
  Sender: FDA-Public Use
  Company Number: US-JNJFOC-20100507288

PATIENT
  Sex: Female
  Weight: 36.4 kg

DRUGS (13)
  1. INFLIXIMAB [Suspect]
     Indication: INFLAMMATORY BOWEL DISEASE
     Route: 042
  2. INFLIXIMAB [Suspect]
     Route: 042
  3. AZATHIOPRINE [Concomitant]
  4. ZINC [Concomitant]
  5. FERROUS SULFATE [Concomitant]
  6. OMEPRAZOLE [Concomitant]
  7. CALCIUM [Concomitant]
  8. RANITIDINE [Concomitant]
  9. BENADRYL [Concomitant]
     Indication: PREMEDICATION
     Route: 042
  10. STEROIDS NOS [Concomitant]
     Indication: PREMEDICATION
     Route: 042
  11. SOLU-MEDROL [Concomitant]
     Indication: PREMEDICATION
  12. MEDROL [Concomitant]
     Indication: PREMEDICATION
  13. 5-ASA [Concomitant]

REACTIONS (5)
  - CHEST DISCOMFORT [None]
  - DYSPNOEA [None]
  - INFUSION RELATED REACTION [None]
  - THROAT TIGHTNESS [None]
  - URTICARIA [None]
